FAERS Safety Report 15100955 (Version 3)
Quarter: 2022Q2

REPORT INFORMATION
  Report Type: Spontaneous
  Country: US (occurrence: US)
  Receive Date: 20180703
  Receipt Date: 20220510
  Transmission Date: 20220721
  Serious: No
  Sender: FDA-Public Use
  Company Number: US-PFIZER INC-2018267861

PATIENT
  Age: 59 Year
  Sex: Female
  Weight: 91.156 kg

DRUGS (22)
  1. XELJANZ [Suspect]
     Active Substance: TOFACITINIB CITRATE
     Indication: Rheumatoid arthritis
     Dosage: 5 MG, 2X/DAY
  2. XELJANZ [Suspect]
     Active Substance: TOFACITINIB CITRATE
     Dosage: 5 MG, 2X/DAY
     Route: 048
     Dates: start: 201805
  3. VOLTARENE [Concomitant]
     Dosage: UNK
  4. ELIDEL [Concomitant]
     Active Substance: PIMECROLIMUS
     Dosage: UNK
  5. HYDROXYCHLOROQUINE [Concomitant]
     Active Substance: HYDROXYCHLOROQUINE
     Dosage: UNK
  6. PREVACID [Concomitant]
     Active Substance: LANSOPRAZOLE
     Dosage: 15 MG
  7. MELOXICAM [Concomitant]
     Active Substance: MELOXICAM
     Dosage: 15 MG
  8. FISH OIL [Concomitant]
     Active Substance: FISH OIL
     Dosage: 1000 MG
  9. ZINC [Concomitant]
     Active Substance: ZINC
     Dosage: 50 MG
  10. FOSAMAX [Concomitant]
     Active Substance: ALENDRONATE SODIUM
     Dosage: 70 MG
  11. VITAMIN D2 [Concomitant]
     Active Substance: ERGOCALCIFEROL
     Dosage: 50 UG
  12. SINGULAIR [Concomitant]
     Active Substance: MONTELUKAST SODIUM
     Dosage: 10 MG
  13. MAGNESIUM OXIDE [Concomitant]
     Active Substance: MAGNESIUM OXIDE
     Dosage: 400 MG
  14. CURCUMIN [Concomitant]
     Active Substance: CURCUMIN
     Dosage: 100 %
  15. CALCIUM [Concomitant]
     Active Substance: CALCIUM
     Dosage: 600 MG
  16. MELATONIN [Concomitant]
     Active Substance: MELATONIN
     Dosage: 3 MG
  17. VITAMIN C [Concomitant]
     Active Substance: ASCORBIC ACID
     Dosage: 500 MG
  18. BLACK COHOSH EXTRACT [Concomitant]
     Dosage: 540 MG
  19. CITRACAL PLUS D [Concomitant]
     Dosage: UNK
  20. VITAMIN B COMPLEX [Concomitant]
     Active Substance: CYANOCOBALAMIN\DEXPANTHENOL\NIACINAMIDE\PYRIDOXINE HYDROCHLORIDE\RIBOFLAVIN 5^-PHOSPHATE SODIUM\THIA
     Dosage: UNK
  21. AZELAIC ACID [Concomitant]
     Active Substance: AZELAIC ACID
     Dosage: 15 %
  22. ZYRTEC [Concomitant]
     Active Substance: CETIRIZINE HYDROCHLORIDE
     Dosage: 10 MG

REACTIONS (4)
  - Drug ineffective [Unknown]
  - Tracheobronchitis [Recovering/Resolving]
  - Laboratory test abnormal [Not Recovered/Not Resolved]
  - Musculoskeletal stiffness [Not Recovered/Not Resolved]
